FAERS Safety Report 5229817-0 (Version None)
Quarter: 2007Q1

REPORT INFORMATION
  Report Type: 
  Country: None (occurrence: None)
  Receive Date: 20070206
  Receipt Date: 20060728
  Transmission Date: 20070707
  Serious: No
  Sender: FDA-Public Use
  Company Number: US-GLAXOSMITHKLINE-A0522607A

PATIENT
  Sex: Female

DRUGS (10)
  1. PAXIL [Suspect]
     Indication: DRUG USE FOR UNKNOWN INDICATION
     Dates: start: 20010501
  2. PAXIL CR [Suspect]
     Indication: DRUG USE FOR UNKNOWN INDICATION
     Dosage: 12.5MG UNKNOWN
     Route: 048
  3. TRILEPTAL [Concomitant]
  4. PREVACID [Concomitant]
  5. TOPROL-XL [Concomitant]
  6. LIPITOR [Concomitant]
  7. MOTRIN [Concomitant]
  8. KEPPRA [Concomitant]
  9. WELLBUTRIN [Concomitant]
     Dosage: 300MGD UNKNOWN
     Route: 048
  10. VIOXX [Concomitant]

REACTIONS (7)
  - BALANCE DISORDER [None]
  - DIZZINESS [None]
  - DRUG WITHDRAWAL SYNDROME [None]
  - DYSPNOEA [None]
  - MOOD SWINGS [None]
  - NAUSEA [None]
  - VERTIGO [None]
